FAERS Safety Report 20697664 (Version 1)
Quarter: 2022Q2

REPORT INFORMATION
  Report Type: Spontaneous
  Country: US (occurrence: US)
  Receive Date: 20220411
  Receipt Date: 20220411
  Transmission Date: 20220721
  Serious: Yes (Hospitalization, Other)
  Sender: FDA-Public Use
  Company Number: US-APOTEX-2022AP005724

PATIENT
  Age: 53 Year
  Sex: Male

DRUGS (1)
  1. AMLODIPINE [Suspect]
     Active Substance: AMLODIPINE BESYLATE
     Indication: Product used for unknown indication
     Dosage: 10 MG TABLETS X 100
     Route: 048

REACTIONS (6)
  - Intentional overdose [Recovering/Resolving]
  - Acute respiratory failure [Recovering/Resolving]
  - Shock [Recovering/Resolving]
  - Pulmonary oedema [Recovering/Resolving]
  - Hyperdynamic left ventricle [Recovering/Resolving]
  - Hypotension [Recovering/Resolving]
